FAERS Safety Report 8157511-5 (Version None)
Quarter: 2012Q1

REPORT INFORMATION
  Report Type: 
  Country: None (occurrence: None)
  Receive Date: 20120222
  Receipt Date: 20120221
  Transmission Date: 20120608
  Serious: Yes (Other)
  Sender: FDA-Public Use
  Company Number: US-PFIZER INC-2012045721

PATIENT
  Sex: Female

DRUGS (4)
  1. CHANTIX [Suspect]
     Dosage: UNK
  2. ESTROGENS CONJUGATED [Suspect]
     Dosage: UNK
  3. TENEX [Suspect]
     Dosage: UNK
  4. ADDERALL 5 [Suspect]
     Dosage: UNK

REACTIONS (2)
  - CHEST PAIN [None]
  - DYSPNOEA [None]
